FAERS Safety Report 8587170-9 (Version None)
Quarter: 2012Q3

REPORT INFORMATION
  Report Type: 
  Country: None (occurrence: None)
  Receive Date: 20120810
  Receipt Date: 20120419
  Transmission Date: 20120928
  Serious: No
  Sender: FDA-Public Use
  Company Number: US-ASTRAZENECA-2008UW15426

PATIENT
  Age: 70 Year
  Sex: Female
  Weight: 59 kg

DRUGS (4)
  1. ARIMIDEX [Suspect]
     Indication: BREAST CANCER
     Route: 048
     Dates: start: 20080101
  2. HYDROCODONE [Concomitant]
     Indication: TOOTHACHE
  3. MOTRIN [Concomitant]
     Indication: TOOTHACHE
  4. DRAMAMINE [Concomitant]
     Indication: SLEEP DISORDER
     Dosage: AT NIGHT
     Route: 048

REACTIONS (32)
  - BLADDER PROLAPSE [None]
  - ANAL PRURITUS [None]
  - CHOLELITHIASIS [None]
  - SOMNOLENCE [None]
  - INSOMNIA [None]
  - LIBIDO INCREASED [None]
  - TREMOR [None]
  - WEIGHT INCREASED [None]
  - HYPOACUSIS [None]
  - TACHYCARDIA [None]
  - URINARY TRACT INFECTION [None]
  - PRURITUS [None]
  - WEIGHT LOSS POOR [None]
  - HYPERAESTHESIA [None]
  - TOOTHACHE [None]
  - DEPRESSED MOOD [None]
  - DEPRESSION [None]
  - SLEEP DISORDER [None]
  - ANXIETY [None]
  - INTESTINAL PROLAPSE [None]
  - FATIGUE [None]
  - HYPERTONIC BLADDER [None]
  - NOCTURIA [None]
  - PAIN IN EXTREMITY [None]
  - UTERINE PROLAPSE [None]
  - HYPERSOMNIA [None]
  - MOOD ALTERED [None]
  - NERVOUSNESS [None]
  - CYSTITIS INTERSTITIAL [None]
  - ANGER [None]
  - ADVERSE EVENT [None]
  - ALOPECIA [None]
